FAERS Safety Report 16838334 (Version 1)
Quarter: 2019Q3

REPORT INFORMATION
  Report Type: Spontaneous
  Country: DE (occurrence: DE)
  Receive Date: 20190923
  Receipt Date: 20190923
  Transmission Date: 20191005
  Serious: Yes (Hospitalization, Other)
  Sender: FDA-Public Use
  Company Number: DE-TEVA-2019-DE-1111100

PATIENT
  Age: 42 Year
  Sex: Male
  Weight: 106 kg

DRUGS (1)
  1. IBUPROFEN 600MG [Suspect]
     Active Substance: IBUPROFEN
     Indication: TOOTHACHE
     Dosage: 600MG UP TO 4 TIMES A DAY
     Route: 048
     Dates: end: 20190807

REACTIONS (2)
  - Jaundice [Unknown]
  - Hepatitis toxic [Recovered/Resolved]

NARRATIVE: CASE EVENT DATE: 20190807
